FAERS Safety Report 9402406 (Version 3)
Quarter: 2013Q4

REPORT INFORMATION
  Report Type: Spontaneous
  Country: JP (occurrence: JP)
  Receive Date: 20130716
  Receipt Date: 20131023
  Transmission Date: 20140711
  Serious: Yes (Disabling, Other)
  Sender: FDA-Public Use
  Company Number: JP-PFIZER INC-2013194800

PATIENT
  Age: 61 Year
  Sex: Male

DRUGS (1)
  1. XALATAN [Suspect]
     Indication: NORMAL TENSION GLAUCOMA
     Dosage: 1 GTT, 1X/DAY
     Route: 047
     Dates: start: 20130531, end: 20130628

REACTIONS (3)
  - Iridocyclitis [Unknown]
  - Corneal oedema [Recovering/Resolving]
  - Corneal opacity [Unknown]
